FAERS Safety Report 6442927-5 (Version None)
Quarter: 2009Q4

REPORT INFORMATION
  Report Type: 
  Country: None (occurrence: None)
  Receive Date: 20091113
  Receipt Date: 20091102
  Transmission Date: 20100525
  Serious: No
  Sender: FDA-Public Use
  Company Number: 420703

PATIENT
  Age: 73 Year
  Sex: Male

DRUGS (15)
  1. OXALIPLATIN [Suspect]
     Indication: OESOPHAGEAL CARCINOMA
     Dosage: 275 MG, 1 DAY, INTRAVENOUS
     Route: 042
     Dates: start: 20091008, end: 20091008
  2. EPIRUBICIN HYDROCHLORIDE INJECTION (EPIRUBICIN) [Concomitant]
  3. ONDANSETRON [Concomitant]
  4. DEXAMETHASONE TAB [Concomitant]
  5. SIMVASTATIN [Concomitant]
  6. XELODA [Concomitant]
  7. BENAZEPRIL HYDROCHLORIDE [Concomitant]
  8. CALCIPOTRIENE [Concomitant]
  9. EUCERIN [Concomitant]
  10. TRIAMCINOLONE [Concomitant]
  11. SYNTHROID [Concomitant]
  12. HYDROCHLOROTHIAZIDE [Concomitant]
  13. PROCHLORPERAZINE [Concomitant]
  14. MAGNESIUM [Concomitant]
  15. OMEPRAZOLE [Concomitant]

REACTIONS (5)
  - ASTHENIA [None]
  - DRUG HYPERSENSITIVITY [None]
  - FATIGUE [None]
  - LARYNGOSPASM [None]
  - STRIDOR [None]
